FAERS Safety Report 7229477-3 (Version None)
Quarter: 2011Q1

REPORT INFORMATION
  Report Type: 
  Country: None (occurrence: None)
  Receive Date: 20110117
  Receipt Date: 20100115
  Transmission Date: 20110831
  Serious: No
  Sender: FDA-Public Use
  Company Number: US-TYCO HEALTHCARE/MALLINCKRODT-T201000344

PATIENT

DRUGS (1)
  1. OPTIRAY 350 [Suspect]
     Indication: COMPUTERISED TOMOGRAM
     Dosage: 120 ML, SINGLE
     Route: 042
     Dates: start: 20091214, end: 20091214

REACTIONS (3)
  - PRURITUS [None]
  - RASH [None]
  - URTICARIA [None]
